FAERS Safety Report 13560429 (Version 4)
Quarter: 2017Q3

REPORT INFORMATION
  Report Type: Report from Study
  Country: BR (occurrence: BR)
  Receive Date: 20170518
  Receipt Date: 20170817
  Transmission Date: 20171127
  Serious: Yes (Death, Hospitalization)
  Sender: FDA-Public Use
  Company Number: BR-ASTRAZENECA-2017SE51588

PATIENT
  Age: 49 Year
  Sex: Male
  Weight: 74 kg

DRUGS (78)
  1. RANITIDINE. [Concomitant]
     Active Substance: RANITIDINE
     Indication: PROPHYLAXIS
     Dates: start: 20170430, end: 20170502
  2. RANITIDINE. [Concomitant]
     Active Substance: RANITIDINE
     Indication: PROPHYLAXIS
     Dates: start: 20170528, end: 20170528
  3. SODIUM CHLORIDE. [Concomitant]
     Active Substance: SODIUM CHLORIDE
     Indication: DYSPHAGIA
     Dates: start: 20170526, end: 20170526
  4. METRONIDAZOLE. [Concomitant]
     Active Substance: METRONIDAZOLE
     Indication: DYSPHAGIA
     Dates: start: 20170502, end: 20170502
  5. FENTANYL. [Concomitant]
     Active Substance: FENTANYL
     Indication: DYSPHAGIA
     Dates: start: 20170528, end: 20170528
  6. RINGER LACTATE SOLUTION [Concomitant]
     Indication: PNEUMONIA ASPIRATION
     Dates: start: 20170526, end: 20170526
  7. SUFENTANIL [Concomitant]
     Active Substance: SUFENTANIL
     Indication: DYSPNOEA
     Dates: start: 20170430, end: 20170430
  8. TRAMAL [Concomitant]
     Active Substance: TRAMADOL
     Indication: PROPHYLAXIS
     Dates: start: 20170501, end: 20170503
  9. SALINE SOLUTION [Concomitant]
     Active Substance: SODIUM CHLORIDE
     Indication: DYSPHAGIA
     Dates: start: 20170429, end: 20170429
  10. SALINE SOLUTION [Concomitant]
     Active Substance: SODIUM CHLORIDE
     Indication: DYSPHAGIA
     Dates: start: 20170430, end: 20170430
  11. MAGNESIUM SULFATE. [Concomitant]
     Active Substance: MAGNESIUM SULFATE
     Indication: PNEUMONIA ASPIRATION
     Dates: start: 20170430, end: 20170430
  12. PROFENID [Concomitant]
     Active Substance: KETOPROFEN
     Indication: PROPHYLAXIS
     Dates: start: 20170501, end: 20170501
  13. RANITIDINE. [Concomitant]
     Active Substance: RANITIDINE
     Indication: PROPHYLAXIS
     Dates: start: 20170523, end: 20170523
  14. RANITIDINE. [Concomitant]
     Active Substance: RANITIDINE
     Indication: PROPHYLAXIS
     Dates: start: 20170525, end: 20170526
  15. SODIUM CHLORIDE. [Concomitant]
     Active Substance: SODIUM CHLORIDE
     Indication: DYSPHAGIA
     Dates: start: 20170525, end: 20170525
  16. FENTANYL. [Concomitant]
     Active Substance: FENTANYL
     Indication: DYSPHAGIA
     Dates: start: 20170526, end: 20170526
  17. RINGER LACTATE SOLUTION [Concomitant]
     Indication: PNEUMONIA ASPIRATION
     Dates: start: 20170527, end: 20170527
  18. MAGNESIUM SULFATE. [Concomitant]
     Active Substance: MAGNESIUM SULFATE
     Indication: DYSPHAGIA
     Dates: start: 20170503, end: 20170503
  19. MAGNESIUM SULFATE. [Concomitant]
     Active Substance: MAGNESIUM SULFATE
     Indication: PNEUMONIA ASPIRATION
     Dates: start: 20170503, end: 20170503
  20. PROFENID [Concomitant]
     Active Substance: KETOPROFEN
     Indication: PROPHYLAXIS
     Dates: start: 20170430, end: 20170430
  21. RANITIDINE. [Concomitant]
     Active Substance: RANITIDINE
     Indication: PROPHYLAXIS
     Dates: start: 20170429, end: 20170429
  22. METRONIDAZOLE. [Concomitant]
     Active Substance: METRONIDAZOLE
     Indication: DYSPHAGIA
     Dates: start: 20170501, end: 20170501
  23. METRONIDAZOLE. [Concomitant]
     Active Substance: METRONIDAZOLE
     Indication: DYSPHAGIA
     Dates: start: 20170503, end: 20170503
  24. MIDAZOLAM [Concomitant]
     Active Substance: MIDAZOLAM HYDROCHLORIDE
     Indication: DYSPHAGIA
     Dates: start: 20170502, end: 20170502
  25. FENTANYL. [Concomitant]
     Active Substance: FENTANYL
     Indication: DYSPHAGIA
     Dates: start: 20170527, end: 20170527
  26. BROMOPRIDE [Concomitant]
     Active Substance: BROMOPRIDE
     Indication: PROPHYLAXIS
     Dates: start: 20170523, end: 20170524
  27. SALINE SOLUTION [Concomitant]
     Active Substance: SODIUM CHLORIDE
     Indication: DYSPHAGIA
     Dates: start: 20170501, end: 20170501
  28. MAGNESIUM SULFATE. [Concomitant]
     Active Substance: MAGNESIUM SULFATE
     Indication: PNEUMONIA ASPIRATION
     Dates: start: 20170523, end: 20170524
  29. MEDI4736 [Suspect]
     Active Substance: DURVALUMAB
     Indication: HEAD AND NECK CANCER METASTATIC
     Dosage: 736.0MG ONCE/SINGLE ADMINISTRATION
     Route: 042
     Dates: start: 20170428, end: 20170428
  30. MEDI4736 [Suspect]
     Active Substance: DURVALUMAB
     Indication: HEAD AND NECK CANCER METASTATIC
     Dosage: 740.0MG ONCE/SINGLE ADMINISTRATION
     Route: 042
     Dates: start: 20170512, end: 20170512
  31. OXYCODONE [Concomitant]
     Active Substance: OXYCODONE
     Indication: GLOSSODYNIA
     Dates: start: 201704
  32. FLUIMUCIL [Concomitant]
     Active Substance: ACETYLCYSTEINE
     Indication: DYSPHAGIA
     Dates: start: 20170503, end: 20170503
  33. FLUIMUCIL [Concomitant]
     Active Substance: ACETYLCYSTEINE
     Indication: DYSPHAGIA
     Dates: start: 20170526, end: 20170526
  34. PROPOFOL. [Concomitant]
     Active Substance: PROPOFOL
     Indication: DYSPHAGIA
     Dates: start: 20170502, end: 20170502
  35. FENTANYL. [Concomitant]
     Active Substance: FENTANYL
     Indication: DYSPHAGIA
     Dates: start: 20170502, end: 20170502
  36. FENTANYL. [Concomitant]
     Active Substance: FENTANYL
     Indication: PNEUMONIA ASPIRATION
     Dates: start: 20170502, end: 20170502
  37. CEFAZOLIN SODIUM. [Concomitant]
     Active Substance: CEFAZOLIN SODIUM
     Indication: DYSPNOEA
     Dates: start: 20170430, end: 20170430
  38. BROMOPRIDE [Concomitant]
     Active Substance: BROMOPRIDE
     Indication: PROPHYLAXIS
     Dates: start: 20170525, end: 20170526
  39. MAGNESIUM SULFATE. [Concomitant]
     Active Substance: MAGNESIUM SULFATE
     Indication: PNEUMONIA ASPIRATION
     Dates: start: 20170527, end: 20170527
  40. MAGNESIUM SULFATE. [Concomitant]
     Active Substance: MAGNESIUM SULFATE
     Indication: DYSPHAGIA
     Dates: start: 20170528, end: 20170528
  41. ZOFRAN [Concomitant]
     Active Substance: ONDANSETRON HYDROCHLORIDE
     Indication: PROPHYLAXIS
     Dates: start: 20170528, end: 20170528
  42. RINGER LACTATE SOLUTION [Concomitant]
     Indication: PNEUMONIA ASPIRATION
     Dates: start: 20170430, end: 20170430
  43. RINGER LACTATE SOLUTION [Concomitant]
     Indication: DYSPNOEA
     Dates: start: 20170527, end: 20170527
  44. BROMOPRIDE [Concomitant]
     Active Substance: BROMOPRIDE
     Indication: PROPHYLAXIS
     Dates: start: 20170503, end: 20170503
  45. MAGNESIUM SULFATE. [Concomitant]
     Active Substance: MAGNESIUM SULFATE
     Indication: DYSPHAGIA
     Dates: start: 20170430, end: 20170430
  46. MAGNESIUM SULFATE. [Concomitant]
     Active Substance: MAGNESIUM SULFATE
     Indication: DYSPHAGIA
     Dates: start: 20170501, end: 20170502
  47. MAGNESIUM SULFATE. [Concomitant]
     Active Substance: MAGNESIUM SULFATE
     Indication: PNEUMONIA ASPIRATION
     Dates: start: 20170501, end: 20170502
  48. MAGNESIUM SULFATE. [Concomitant]
     Active Substance: MAGNESIUM SULFATE
     Indication: DYSPHAGIA
     Dates: start: 20170526, end: 20170526
  49. MAGNESIUM SULFATE. [Concomitant]
     Active Substance: MAGNESIUM SULFATE
     Indication: PNEUMONIA ASPIRATION
     Dates: start: 20170526, end: 20170526
  50. SODIUM CHLORIDE. [Concomitant]
     Active Substance: SODIUM CHLORIDE
     Indication: DYSPHAGIA
     Dates: start: 20170502, end: 20170502
  51. FLUIMUCIL [Concomitant]
     Active Substance: ACETYLCYSTEINE
     Indication: DYSPHAGIA
     Dates: start: 20170527, end: 20170527
  52. MIDAZOLAM [Concomitant]
     Active Substance: MIDAZOLAM HYDROCHLORIDE
     Indication: DYSPHAGIA
     Dates: start: 20170528, end: 20170528
  53. FENTANYL. [Concomitant]
     Active Substance: FENTANYL
     Indication: PNEUMONIA ASPIRATION
     Dates: start: 20170526, end: 20170526
  54. RINGER LACTATE SOLUTION [Concomitant]
     Indication: DYSPNOEA
     Dates: start: 20170430, end: 20170430
  55. DEXAMETHASONE. [Concomitant]
     Active Substance: DEXAMETHASONE
     Indication: DYSPNOEA
     Dates: start: 20170430, end: 20170430
  56. TRAMAL [Concomitant]
     Active Substance: TRAMADOL
     Indication: PROPHYLAXIS
     Dates: start: 20170429, end: 20170429
  57. BROMOPRIDE [Concomitant]
     Active Substance: BROMOPRIDE
     Indication: PROPHYLAXIS
     Dates: start: 20170429, end: 20170429
  58. MAGNESIUM SULFATE. [Concomitant]
     Active Substance: MAGNESIUM SULFATE
     Indication: DYSPHAGIA
     Dates: start: 20170527, end: 20170527
  59. MAGNESIUM SULFATE. [Concomitant]
     Active Substance: MAGNESIUM SULFATE
     Indication: PNEUMONIA ASPIRATION
     Dates: start: 20170528, end: 20170528
  60. FLUIMUCIL [Concomitant]
     Active Substance: ACETYLCYSTEINE
     Indication: DYSPHAGIA
     Dates: start: 20170502, end: 20170502
  61. MIDAZOLAM [Concomitant]
     Active Substance: MIDAZOLAM HYDROCHLORIDE
     Indication: DYSPHAGIA
     Dates: start: 20170527, end: 20170527
  62. FENTANYL. [Concomitant]
     Active Substance: FENTANYL
     Indication: PNEUMONIA ASPIRATION
     Dates: start: 20170527, end: 20170527
  63. SALINE SOLUTION [Concomitant]
     Active Substance: SODIUM CHLORIDE
     Indication: DYSPHAGIA
     Dates: start: 20170528, end: 20170528
  64. MAGNESIUM SULFATE. [Concomitant]
     Active Substance: MAGNESIUM SULFATE
     Indication: DYSPHAGIA
     Dates: start: 20170523, end: 20170524
  65. RANITIDINE. [Concomitant]
     Active Substance: RANITIDINE
     Indication: PROPHYLAXIS
     Dates: start: 20170503, end: 20170503
  66. RANITIDINE. [Concomitant]
     Active Substance: RANITIDINE
     Indication: PROPHYLAXIS
     Dates: start: 20170527, end: 20170527
  67. SODIUM CHLORIDE. [Concomitant]
     Active Substance: SODIUM CHLORIDE
     Indication: DYSPHAGIA
     Dates: start: 20170501, end: 20170501
  68. SODIUM CHLORIDE. [Concomitant]
     Active Substance: SODIUM CHLORIDE
     Indication: DYSPHAGIA
     Dates: start: 20170523, end: 20170523
  69. SODIUM CHLORIDE. [Concomitant]
     Active Substance: SODIUM CHLORIDE
     Indication: DYSPHAGIA
     Dates: start: 20170524, end: 20170524
  70. SODIUM CHLORIDE. [Concomitant]
     Active Substance: SODIUM CHLORIDE
     Indication: DYSPHAGIA
     Dates: start: 20170527, end: 20170527
  71. ZOFRAN [Concomitant]
     Active Substance: ONDANSETRON HYDROCHLORIDE
     Indication: PROPHYLAXIS
     Dates: start: 20170501, end: 20170501
  72. FLUIMUCIL [Concomitant]
     Active Substance: ACETYLCYSTEINE
     Indication: DYSPHAGIA
     Dates: start: 20170525, end: 20170525
  73. FENTANYL. [Concomitant]
     Active Substance: FENTANYL
     Indication: PNEUMONIA ASPIRATION
     Dates: start: 20170528, end: 20170528
  74. RINGER LACTATE SOLUTION [Concomitant]
     Indication: DYSPNOEA
     Dates: start: 20170526, end: 20170526
  75. BROMOPRIDE [Concomitant]
     Active Substance: BROMOPRIDE
     Indication: PROPHYLAXIS
     Dates: start: 20170430, end: 20170502
  76. BROMOPRIDE [Concomitant]
     Active Substance: BROMOPRIDE
     Indication: PROPHYLAXIS
     Dates: start: 20170527, end: 20170527
  77. PROFENID [Concomitant]
     Active Substance: KETOPROFEN
     Indication: PROPHYLAXIS
     Dates: start: 20170502, end: 20170502
  78. PROFENID [Concomitant]
     Active Substance: KETOPROFEN
     Indication: PROPHYLAXIS
     Dates: start: 20170503, end: 20170503

REACTIONS (1)
  - Tumour necrosis [Recovering/Resolving]

NARRATIVE: CASE EVENT DATE: 20170509
